FAERS Safety Report 9121246 (Version 1)
Quarter: 2013Q1

REPORT INFORMATION
  Report Type: Report from Study
  Country: US (occurrence: US)
  Receive Date: 20130225
  Receipt Date: 20130225
  Transmission Date: 20140127
  Serious: Yes (Death, Hospitalization)
  Sender: FDA-Public Use
  Company Number: US-ROCHE-1173391

PATIENT
  Age: 75 None
  Sex: Female
  Weight: 77.18 kg

DRUGS (1)
  1. CAPECITABINE [Suspect]
     Indication: BREAST CANCER METASTATIC
     Route: 048
     Dates: start: 20121201, end: 20121215

REACTIONS (14)
  - Breast cancer metastatic [Fatal]
  - Loss of consciousness [Recovered/Resolved]
  - Oral pain [Not Recovered/Not Resolved]
  - Diarrhoea [Not Recovered/Not Resolved]
  - Nausea [Not Recovered/Not Resolved]
  - Decreased appetite [Unknown]
  - Constipation [Recovered/Resolved]
  - Vomiting [Not Recovered/Not Resolved]
  - Back pain [Recovered/Resolved]
  - Rectal haemorrhage [Unknown]
  - Asthenia [Recovered/Resolved]
  - Dehydration [Recovered/Resolved]
  - Dysphagia [Unknown]
  - Aphasia [Unknown]
